FAERS Safety Report 25038724 (Version 1)
Quarter: 2025Q1

REPORT INFORMATION
  Report Type: Spontaneous
  Country: FI (occurrence: FI)
  Receive Date: 20250304
  Receipt Date: 20250304
  Transmission Date: 20250409
  Serious: Yes (Other)
  Sender: GLAXOSMITHKLINE
  Company Number: None

PATIENT

DRUGS (2)
  1. BACTROBAN [Suspect]
     Active Substance: MUPIROCIN CALCIUM
     Indication: Preoperative care
     Dosage: 1 DF, BID(2 TIMES/DAY)
     Route: 045
     Dates: start: 20250220
  2. TRILEPTAL [Concomitant]
     Active Substance: OXCARBAZEPINE
     Indication: Epilepsy
     Dosage: 450 MG, BID (2 TIMES A DAY)
     Route: 048
     Dates: start: 2022

REACTIONS (1)
  - Oral mucosal blistering [Recovered/Resolved]

NARRATIVE: CASE EVENT DATE: 20250222
